FAERS Safety Report 19516460 (Version 2)
Quarter: 2021Q3

REPORT INFORMATION
  Report Type: Spontaneous
  Country: US (occurrence: US)
  Receive Date: 20210709
  Receipt Date: 20210709
  Transmission Date: 20211014
  Serious: No
  Sender: FDA-Public Use
  Company Number: US-ASTELLAS-2020US044633

PATIENT
  Sex: Female

DRUGS (4)
  1. BETMIGA [Suspect]
     Active Substance: MIRABEGRON
     Indication: URINARY INCONTINENCE
  2. MYRBETRIQ [Suspect]
     Active Substance: MIRABEGRON
     Indication: URINARY INCONTINENCE
  3. MYRBETRIQ [Suspect]
     Active Substance: MIRABEGRON
     Indication: POLLAKIURIA
     Route: 048
     Dates: start: 2019, end: 202008
  4. BETMIGA [Suspect]
     Active Substance: MIRABEGRON
     Indication: POLLAKIURIA
     Route: 048
     Dates: start: 202010

REACTIONS (2)
  - Inability to afford medication [Unknown]
  - Drug effect less than expected [Unknown]
